FAERS Safety Report 6822936-4 (Version None)
Quarter: 2010Q3

REPORT INFORMATION
  Report Type: 
  Country: None (occurrence: None)
  Receive Date: 20100708
  Receipt Date: 20100701
  Transmission Date: 20110219
  Serious: Yes (Hospitalization)
  Sender: FDA-Public Use
  Company Number: A0780406A

PATIENT
  Age: 70 Year
  Sex: Male
  Weight: 133 kg

DRUGS (10)
  1. AVANDIA [Suspect]
     Indication: DIABETES MELLITUS
     Dosage: 4MG TWICE PER DAY
     Route: 048
     Dates: start: 20020423, end: 20070809
  2. CALAN [Concomitant]
  3. GLYBURIDE [Concomitant]
  4. GLUCOPHAGE [Concomitant]
  5. PRINIVIL [Concomitant]
  6. EFFEXOR [Concomitant]
  7. ZANTAC [Concomitant]
  8. SYNTHROID [Concomitant]
  9. HYDRODIURIL [Concomitant]
  10. SIMVASTATIN [Concomitant]

REACTIONS (3)
  - ARTERIOSCLEROSIS [None]
  - CORONARY ARTERY DISEASE [None]
  - MYOCARDIAL INFARCTION [None]
